FAERS Safety Report 23447679 (Version 1)
Quarter: 2024Q1

REPORT INFORMATION
  Report Type: Spontaneous
  Country: US (occurrence: None)
  Receive Date: 20240126
  Receipt Date: 20240126
  Transmission Date: 20240410
  Serious: Yes (Hospitalization)
  Sender: FDA-Public Use
  Company Number: None

PATIENT
  Sex: Female

DRUGS (1)
  1. OJJAARA [Suspect]
     Active Substance: MOMELOTINIB DIHYDROCHLORIDE MONOHYDRATE
     Indication: Myelofibrosis
     Dosage: FREQUENCY : DAILY;?
     Route: 048
     Dates: start: 20240105

REACTIONS (7)
  - Influenza [None]
  - Dyspnoea [None]
  - General physical health deterioration [None]
  - Oxygen saturation decreased [None]
  - Haemoglobin decreased [None]
  - Fatigue [None]
  - Feeling abnormal [None]
